FAERS Safety Report 23058658 (Version 1)
Quarter: 2023Q4

REPORT INFORMATION
  Report Type: Spontaneous
  Country: US (occurrence: US)
  Receive Date: 20231012
  Receipt Date: 20231012
  Transmission Date: 20240110
  Serious: Yes (Hospitalization)
  Sender: FDA-Public Use
  Company Number: US-SPECGX-T202301990

PATIENT
  Age: 50 Year
  Sex: Male

DRUGS (2)
  1. FENTANYL CITRATE [Suspect]
     Active Substance: FENTANYL CITRATE
     Indication: Product used for unknown indication
     Dosage: UNK
     Route: 065
  2. ALPRAZOLAM [Suspect]
     Active Substance: ALPRAZOLAM
     Indication: Product used for unknown indication
     Dosage: UNK
     Route: 065

REACTIONS (20)
  - Hyperkalaemia [Unknown]
  - Blood creatinine increased [Unknown]
  - Liver function test increased [Unknown]
  - Blood lactic acid increased [Unknown]
  - Hypothermia [Unknown]
  - Cytotoxic oedema [Unknown]
  - Respiratory acidosis [Unknown]
  - Deafness [Unknown]
  - Hypoxia [Unknown]
  - Overdose [Unknown]
  - Toxicity to various agents [Unknown]
  - Somnolence [Unknown]
  - Amnesia [Unknown]
  - Hypotension [Unknown]
  - Hypoglycaemia [Unknown]
  - Miosis [Unknown]
  - Speech disorder [Unknown]
  - Mydriasis [Unknown]
  - Agitation [Unknown]
  - Confusional state [Unknown]
